FAERS Safety Report 8037518-9 (Version None)
Quarter: 2012Q1

REPORT INFORMATION
  Report Type: 
  Country: None (occurrence: None)
  Receive Date: 20120111
  Receipt Date: 20120109
  Transmission Date: 20120608
  Serious: Yes (Hospitalization)
  Sender: FDA-Public Use
  Company Number: FR-ROCHE-1028792

PATIENT
  Sex: Female

DRUGS (8)
  1. PREDNISONE TAB [Suspect]
     Indication: PRODUCT USED FOR UNKNOWN INDICATION
     Route: 048
  2. NEXIUM [Suspect]
  3. MYCOPHENOLATE MOFETIL (CELLCEPT) [Suspect]
     Indication: PRODUCT USED FOR UNKNOWN INDICATION
     Dates: end: 20100921
  4. CITALOPRAM [Suspect]
     Indication: PRODUCT USED FOR UNKNOWN INDICATION
  5. NEXIUM [Suspect]
     Indication: PRODUCT USED FOR UNKNOWN INDICATION
     Route: 048
  6. CALCIUM CARBONATE [Concomitant]
     Dosage: HALF DOSE FORM DAILY
  7. DIGOXIN [Concomitant]
  8. CALCIUM CARBONATE [Concomitant]

REACTIONS (3)
  - MELAENA [None]
  - ANAEMIA [None]
  - RECTAL HAEMORRHAGE [None]
